FAERS Safety Report 25929218 (Version 2)
Quarter: 2025Q4

REPORT INFORMATION
  Report Type: Report from Study
  Country: EU (occurrence: EU)
  Receive Date: 20251016
  Receipt Date: 20251111
  Transmission Date: 20260118
  Serious: Yes (Hospitalization)
  Sender: ABBVIE
  Company Number: EU-ABBVIE-6470218

PATIENT
  Age: 61 Year
  Sex: Female
  Weight: 58 kg

DRUGS (1)
  1. MIRVETUXIMAB SORAVTANSINE [Suspect]
     Active Substance: MIRVETUXIMAB SORAVTANSINE
     Indication: Ovarian epithelial cancer
     Dosage: 6 MG/KG
     Route: 042
     Dates: start: 20250929

REACTIONS (8)
  - Headache [Unknown]
  - Posterior reversible encephalopathy syndrome [Unknown]
  - Vomiting [Recovered/Resolved]
  - Hypertension [Recovered/Resolved]
  - Headache [Recovered/Resolved]
  - Intercepted medication error [Unknown]
  - Visual acuity reduced [Recovered/Resolved]
  - Nausea [Recovered/Resolved]

NARRATIVE: CASE EVENT DATE: 20251008
